FAERS Safety Report 11621224 (Version 1)
Quarter: 2015Q4

REPORT INFORMATION
  Report Type: Spontaneous
  Country: US (occurrence: US)
  Receive Date: 20151012
  Receipt Date: 20151012
  Transmission Date: 20160304
  Serious: No
  Sender: FDA-Public Use
  Company Number: US-GLAXOSMITHKLINE-US2015144647

PATIENT
  Age: 61 Year
  Sex: Female

DRUGS (2)
  1. NSAID [Suspect]
     Active Substance: UNSPECIFIED INGREDIENT
  2. BUPROPION HYDROCHLORIDE. [Suspect]
     Active Substance: BUPROPION HYDROCHLORIDE
     Indication: DEPRESSION
     Dosage: 450 MG, 1D
     Route: 048
     Dates: start: 2013

REACTIONS (7)
  - Migraine [Unknown]
  - Eye swelling [Unknown]
  - Malaise [Unknown]
  - Swelling face [Not Recovered/Not Resolved]
  - Impaired work ability [Unknown]
  - Purpura [Not Recovered/Not Resolved]
  - Erythema [Recovered/Resolved]

NARRATIVE: CASE EVENT DATE: 20150907
